FAERS Safety Report 12105542 (Version 3)
Quarter: 2016Q3

REPORT INFORMATION
  Report Type: Spontaneous
  Country: FR (occurrence: FR)
  Receive Date: 20160223
  Receipt Date: 20160706
  Transmission Date: 20161109
  Serious: Yes (Other)
  Sender: FDA-Public Use
  Company Number: FR-009507513-1602FRA009503

PATIENT
  Age: 38 Year
  Sex: Male

DRUGS (2)
  1. YERVOY [Suspect]
     Active Substance: IPILIMUMAB
     Indication: METASTATIC MALIGNANT MELANOMA
     Dosage: 9.5238 MG (200 MG EVERY 3 WEEKS), Q3W. STRENGTH: 5 MG/ML
     Route: 042
     Dates: start: 20150317, end: 20150519
  2. KEYTRUDA [Suspect]
     Active Substance: PEMBROLIZUMAB
     Indication: METASTATIC MALIGNANT MELANOMA
     Dosage: 0.0952 MG/KG (2 MG/KG EVERY 3 WEEKS)
     Route: 042
     Dates: start: 20150708, end: 20151020

REACTIONS (1)
  - Myocarditis [Recovered/Resolved with Sequelae]

NARRATIVE: CASE EVENT DATE: 201508
